FAERS Safety Report 5374730-1 (Version None)
Quarter: 2007Q2

REPORT INFORMATION
  Report Type: 
  Country: None (occurrence: None)
  Receive Date: 20070629
  Receipt Date: 20070622
  Transmission Date: 20071010
  Serious: Yes (Death)
  Sender: FDA-Public Use
  Company Number: AU-ABBOTT-07P-008-0372397-00

PATIENT
  Age: 30 Year
  Sex: Female

DRUGS (2)
  1. EPILIM [Suspect]
     Indication: AFFECTIVE DISORDER
     Route: 048
  2. EPILIM [Suspect]
     Indication: EPILEPSY
     Route: 048

REACTIONS (1)
  - EPILEPSY [None]
